FAERS Safety Report 9036530 (Version 1)
Quarter: 2013Q1

REPORT INFORMATION
  Report Type: Report from Study
  Country: US (occurrence: US)
  Receive Date: 20130129
  Receipt Date: 20130129
  Transmission Date: 20140127
  Serious: No
  Sender: FDA-Public Use
  Company Number: US-ABBOTT-12P-163-0888948-00

PATIENT
  Sex: Male

DRUGS (12)
  1. HUMIRA 40 MG/0.8 ML PEN [Suspect]
     Indication: CROHN^S DISEASE
     Route: 058
     Dates: start: 201112
  2. PENTASA [Concomitant]
     Indication: PRODUCT USED FOR UNKNOWN INDICATION
  3. PERCOCET [Concomitant]
     Indication: BACK PAIN
  4. LYRICA [Concomitant]
     Indication: BACK PAIN
  5. FLEXERIL [Concomitant]
     Indication: BACK PAIN
  6. PAXIL [Concomitant]
     Indication: OBSESSIVE-COMPULSIVE DISORDER
  7. PAXIL [Concomitant]
     Indication: ANXIETY
  8. RISPERDAL [Concomitant]
     Indication: OBSESSIVE-COMPULSIVE DISORDER
  9. RISPERDAL [Concomitant]
     Indication: ANXIETY
  10. LAMICTAL [Concomitant]
     Indication: OBSESSIVE-COMPULSIVE DISORDER
  11. LAMICTAL [Concomitant]
     Indication: ANXIETY
  12. XANAX [Concomitant]
     Indication: PRODUCT USED FOR UNKNOWN INDICATION
     Dosage: 0.25 MG - THREE AT BEDTIME AS NEEDED

REACTIONS (1)
  - Rash papular [Not Recovered/Not Resolved]
